FAERS Safety Report 22265335 (Version 4)
Quarter: 2023Q2

REPORT INFORMATION
  Report Type: Spontaneous
  Country: HU (occurrence: HU)
  Receive Date: 20230428
  Receipt Date: 20230613
  Transmission Date: 20230722
  Serious: Yes (Hospitalization, Other)
  Sender: FDA-Public Use
  Company Number: HU-AMGEN-HUNSP2023071460

PATIENT
  Age: 62 Year
  Sex: Female

DRUGS (7)
  1. XGEVA [Suspect]
     Active Substance: DENOSUMAB
     Indication: Plasma cell myeloma
     Dosage: 120 MILLIGRAM, Q4WK
     Route: 058
     Dates: start: 20230407
  2. BORTEZOMIB [Concomitant]
     Active Substance: BORTEZOMIB
  3. LENALIDOMIDE [Concomitant]
     Active Substance: LENALIDOMIDE
  4. DEXAMETHASONE [Concomitant]
     Active Substance: DEXAMETHASONE
  5. CYCLOPHOSPHAMIDE [Concomitant]
     Active Substance: CYCLOPHOSPHAMIDE
  6. Citrocalcium [Concomitant]
     Dosage: 2 X 200 MILLIGRAM
  7. CALCIUM GLUCONATE [Concomitant]
     Active Substance: CALCIUM GLUCONATE
     Dosage: 3 X LAMP

REACTIONS (9)
  - Hypocalcaemic seizure [Recovered/Resolved]
  - Vitamin D decreased [Recovered/Resolved]
  - Hypotension [Recovered/Resolved]
  - Polyneuropathy [Unknown]
  - Beta 2 microglobulin increased [Unknown]
  - Hypertension [Unknown]
  - Gastrooesophageal reflux disease [Unknown]
  - Hyperlipidaemia [Unknown]
  - Anaemia [Unknown]

NARRATIVE: CASE EVENT DATE: 20230417
